FAERS Safety Report 5622246-7 (Version None)
Quarter: 2008Q1

REPORT INFORMATION
  Report Type: 
  Country: None (occurrence: None)
  Receive Date: 20080211
  Receipt Date: 20080130
  Transmission Date: 20080703
  Serious: Yes (Hospitalization)
  Sender: FDA-Public Use
  Company Number: FR-ROCHE-544741

PATIENT
  Age: 70 Year
  Sex: Male

DRUGS (5)
  1. KYTRIL [Suspect]
     Indication: PREMEDICATION
     Dosage: RECEIVED ONCE
     Route: 042
     Dates: start: 20071214, end: 20071214
  2. RANIPLEX [Suspect]
     Indication: PREMEDICATION
     Dosage: FORM: INJECTABLE SOLUTION, AMPULE; RECEIVED ONCE
     Route: 042
     Dates: start: 20071214, end: 20071214
  3. POLARAMINE [Suspect]
     Indication: PREMEDICATION
     Dosage: FORM: INJECTABLE SOLUTION, AMPULE; RECEIVED ONCE
     Route: 042
     Dates: start: 20071214, end: 20071214
  4. TAXOTERE [Suspect]
     Dosage: FORM: INJECTABLE SOLUTION; RECEIVED ONCE
     Route: 042
     Dates: start: 20071214, end: 20071214
  5. SOLU-MEDROL [Suspect]
     Indication: PREMEDICATION
     Dosage: RECEIVED ONCE
     Route: 042
     Dates: start: 20071214, end: 20071214

REACTIONS (1)
  - MYOCARDIAL INFARCTION [None]
